FAERS Safety Report 6889515-4 (Version None)
Quarter: 2010Q3

REPORT INFORMATION
  Report Type: 
  Country: None (occurrence: None)
  Receive Date: 20100730
  Receipt Date: 20080308
  Transmission Date: 20110219
  Serious: No
  Sender: FDA-Public Use
  Company Number: US-PFIZER INC-2008022512

PATIENT
  Sex: Male
  Weight: 79.545 kg

DRUGS (6)
  1. LIPITOR [Suspect]
     Indication: BLOOD CHOLESTEROL INCREASED
     Dates: start: 20020101, end: 20080201
  2. COUMADIN [Concomitant]
  3. DIGOXIN [Concomitant]
     Indication: ARRHYTHMIA
  4. COREG [Concomitant]
  5. AMARYL [Concomitant]
  6. ALTACE [Concomitant]

REACTIONS (1)
  - MYALGIA [None]
